FAERS Safety Report 4454044-4 (Version None)
Quarter: 2004Q3

REPORT INFORMATION
  Report Type: 
  Country: None (occurrence: None)
  Receive Date: 20040920
  Receipt Date: 20040914
  Transmission Date: 20050211
  Serious: Yes (Other)
  Sender: FDA-Public Use
  Company Number: PHNU2004DE03221

PATIENT
  Sex: Female

DRUGS (1)
  1. CAFERGOT [Suspect]
     Route: 065

REACTIONS (2)
  - AUTOIMMUNE DISORDER [None]
  - KERATOCONJUNCTIVITIS SICCA [None]
